FAERS Safety Report 7590864-5 (Version None)
Quarter: 2011Q3

REPORT INFORMATION
  Report Type: 
  Country: None (occurrence: None)
  Receive Date: 20110705
  Receipt Date: 20110623
  Transmission Date: 20111222
  Serious: Yes (Hospitalization)
  Sender: FDA-Public Use
  Company Number: PHHY2011AR13354

PATIENT
  Sex: Male

DRUGS (1)
  1. EXELON [Suspect]
     Indication: FRONTOTEMPORAL DEMENTIA
     Dosage: ONE PATCH DAILY
     Route: 062
     Dates: start: 20081101

REACTIONS (5)
  - HAEMORRHAGE URINARY TRACT [None]
  - BRONCHITIS [None]
  - BLADDER CANCER [None]
  - URINARY TRACT INFECTION [None]
  - BRONCHOSPASM [None]
